FAERS Safety Report 21636169 (Version 2)
Quarter: 2022Q4

REPORT INFORMATION
  Report Type: Spontaneous
  Country: IT (occurrence: None)
  Receive Date: 20221124
  Receipt Date: 20221205
  Transmission Date: 20230112
  Serious: Yes (Other)
  Sender: FDA-Public Use
  Company Number: IT-ROCHE-3223836

PATIENT
  Age: 53 Year
  Sex: Male

DRUGS (1)
  1. OCREVUS [Suspect]
     Active Substance: OCRELIZUMAB
     Indication: Primary progressive multiple sclerosis
     Route: 065
     Dates: start: 2018

REACTIONS (7)
  - Decreased vibratory sense [Unknown]
  - Weight increased [Unknown]
  - Motor dysfunction [Unknown]
  - Arthralgia [Unknown]
  - Anxiety [Unknown]
  - Micturition urgency [Unknown]
  - Multiple sclerosis [Unknown]
